FAERS Safety Report 5034827-2 (Version None)
Quarter: 2006Q2

REPORT INFORMATION
  Report Type: 
  Country: None (occurrence: None)
  Receive Date: 20060519
  Receipt Date: 20060224
  Transmission Date: 20061013
  Serious: No
  Sender: FDA-Public Use
  Company Number: TPA2006A00337

PATIENT
  Age: 48 Year
  Sex: Female
  Weight: 81.6475 kg

DRUGS (1)
  1. ROZEREM [Suspect]
     Indication: INSOMNIA
     Dosage: 8 MG, HS, PER ORAL
     Route: 048

REACTIONS (2)
  - INITIAL INSOMNIA [None]
  - SOMNOLENCE [None]
